FAERS Safety Report 7527278-X (Version None)
Quarter: 2011Q2

REPORT INFORMATION
  Report Type: 
  Country: None (occurrence: None)
  Receive Date: 20110603
  Receipt Date: 20110603
  Transmission Date: 20111010
  Serious: Yes (Life-Threatening, Hospitalization, Disabling, Other)
  Sender: FDA-Public Use
  Company Number: None

PATIENT
  Age: 53 Year
  Sex: Male
  Weight: 88.4514 kg

DRUGS (2)
  1. CIPROFLOXACIN HCL [Suspect]
     Indication: URINARY TRACT INFECTION
     Dosage: 1 TABLET TWICE / DAILY
     Dates: start: 20100601, end: 20100607
  2. CIPROFLOXACIN HCL [Suspect]
     Indication: CYSTITIS
     Dosage: 1 TABLET TWICE / DAILY
     Dates: start: 20100601, end: 20100607

REACTIONS (6)
  - URTICARIA [None]
  - PULMONARY THROMBOSIS [None]
  - PULMONARY EMBOLISM [None]
  - ILEUS [None]
  - RESTRICTIVE PULMONARY DISEASE [None]
  - HYPERSENSITIVITY [None]
